FAERS Safety Report 4276985-3 (Version None)
Quarter: 2004Q1

REPORT INFORMATION
  Report Type: 
  Country: None (occurrence: None)
  Receive Date: 20040120
  Receipt Date: 20040115
  Transmission Date: 20041129
  Serious: Yes (Hospitalization)
  Sender: FDA-Public Use
  Company Number: 2003-12-1516

PATIENT
  Age: 41 Year
  Sex: Male

DRUGS (3)
  1. PEG-INTRON [Suspect]
     Indication: CHRONIC HEPATITIS
     Dosage: 1.5 UG/KG QW SUBCUTANEOUS
     Route: 058
     Dates: start: 20011109, end: 20011116
  2. RIBAVIRIN [Suspect]
     Indication: CHRONIC HEPATITIS
     Dosage: 800 MG QD ORAL
     Route: 048
     Dates: start: 20011109, end: 20011120
  3. ACETAMINOPHEN [Concomitant]

REACTIONS (2)
  - GLOMERULONEPHRITIS MINIMAL LESION [None]
  - NEPHROTIC SYNDROME [None]
